FAERS Safety Report 8048705-8 (Version None)
Quarter: 2012Q1

REPORT INFORMATION
  Report Type: 
  Country: None (occurrence: None)
  Receive Date: 20120117
  Receipt Date: 20120109
  Transmission Date: 20120608
  Serious: Yes (Other)
  Sender: FDA-Public Use
  Company Number: US-UCBSA-049378

PATIENT
  Age: 31 Year
  Sex: Female

DRUGS (2)
  1. KEPPRA [Suspect]
     Indication: EPILEPSY
     Dosage: BRAND KEPPRA
     Dates: end: 20090502
  2. KEPPRA XR [Suspect]
     Indication: EPILEPSY
     Dates: start: 20090502

REACTIONS (3)
  - PREGNANCY [None]
  - CAESAREAN SECTION [None]
  - UTERINE DISORDER [None]
